FAERS Safety Report 6032198-6 (Version None)
Quarter: 2009Q1

REPORT INFORMATION
  Report Type: 
  Country: None (occurrence: None)
  Receive Date: 20090108
  Receipt Date: 20081230
  Transmission Date: 20090719
  Serious: Yes (Other)
  Sender: FDA-Public Use
  Company Number: JP-ROXANE LABORATORIES, INC.-2008-RO-00499RO

PATIENT
  Age: 50 Year
  Sex: Male

DRUGS (6)
  1. LIDOCAINE [Suspect]
     Indication: DENTAL CARE
  2. MEPIVACAINE HCL [Suspect]
     Indication: INTERVERTEBRAL DISC PROTRUSION
  3. PROPITOCAINE HYDROCHLORIDE [Suspect]
     Indication: DENTAL CARE
     Dates: start: 20060322, end: 20060425
  4. FELYPRESSIN [Suspect]
     Indication: DENTAL CARE
     Dates: start: 20060322, end: 20060425
  5. CLOBETASOL BUTYRATE OINTMENT [Concomitant]
     Indication: DRUG ERUPTION
     Route: 061
  6. PREDNISOLONE HYDROCHLORIDE [Concomitant]
     Indication: DRUG ERUPTION
     Route: 048

REACTIONS (2)
  - CROSS SENSITIVITY REACTION [None]
  - DRUG ERUPTION [None]
